FAERS Safety Report 9849004 (Version 1)
Quarter: 2014Q1

REPORT INFORMATION
  Report Type: Spontaneous
  Country: US (occurrence: None)
  Receive Date: 20140127
  Receipt Date: 20140127
  Transmission Date: 20141002
  Serious: Yes (Disabling)
  Sender: FDA-Public Use
  Company Number: None

PATIENT
  Age: 25 Year
  Sex: Female
  Weight: 49.9 kg

DRUGS (1)
  1. NORETHINDRONE [Suspect]
     Indication: CONTRACEPTION
     Dosage: TAKEN BY MOUTH
     Dates: start: 20130601, end: 20140101

REACTIONS (3)
  - Depression [None]
  - Constipation [None]
  - Underweight [None]
